FAERS Safety Report 8317768 (Version 4)
Quarter: 2014Q1

REPORT INFORMATION
  Report Type: Report from Study
  Country: FR (occurrence: FR)
  Receive Date: 20120102
  Receipt Date: 20140203
  Transmission Date: 20141002
  Serious: Yes (Hospitalization, Other)
  Sender: FDA-Public Use
  Company Number: FR-ROCHE-683703

PATIENT
  Age: 55 Year
  Sex: Female
  Weight: 63 kg

DRUGS (20)
  1. RITUXIMAB [Suspect]
     Indication: RHEUMATOID ARTHRITIS
     Dosage: RECEIVED 3 CYCLES
     Route: 042
  2. RITUXIMAB [Suspect]
     Dosage: ON DAY 15
     Route: 042
  3. RITUXIMAB [Suspect]
     Dosage: ON DAY 1
     Route: 042
  4. RITUXIMAB [Suspect]
     Dosage: ON DAY 15
     Route: 042
  5. RITUXIMAB [Suspect]
     Dosage: ON DAY 1
     Route: 042
  6. RITUXIMAB [Suspect]
     Route: 042
  7. RITUXIMAB [Suspect]
     Route: 042
  8. RITUXIMAB [Suspect]
     Dosage: ON DAY 15
     Route: 042
  9. CORTANCYL [Concomitant]
     Route: 048
     Dates: start: 199606
  10. CORTANCYL [Concomitant]
     Route: 065
  11. CORTANCYL [Concomitant]
     Route: 065
  12. CORTANCYL [Concomitant]
     Route: 065
  13. CORTANCYL [Concomitant]
     Route: 065
  14. CORTANCYL [Concomitant]
     Route: 065
  15. ARAVA [Concomitant]
     Route: 048
     Dates: start: 200606
  16. OROCAL [Concomitant]
     Dosage: DRUG NAME:OROCAL VIT D3
     Route: 048
     Dates: start: 199811
  17. FOSAMAX [Concomitant]
     Route: 065
     Dates: start: 199811, end: 200801
  18. REMICADE [Concomitant]
     Route: 065
     Dates: end: 2006
  19. PLAQUENIL [Concomitant]
  20. EFFERALGAN [Concomitant]

REACTIONS (7)
  - Hepatic echinococciasis [Not Recovered/Not Resolved]
  - Osteoarthritis [Recovered/Resolved]
  - Monarthritis [Unknown]
  - Headache [Recovered/Resolved]
  - Asthenia [Recovered/Resolved]
  - Hyperthyroidism [Not Recovered/Not Resolved]
  - Bronchitis [Recovered/Resolved]
